FAERS Safety Report 9520932 (Version 1)
Quarter: 2013Q3

REPORT INFORMATION
  Report Type: Spontaneous
  Country: US (occurrence: US)
  Receive Date: 20130913
  Receipt Date: 20130913
  Transmission Date: 20140515
  Serious: No
  Sender: FDA-Public Use
  Company Number: US-PFIZER INC-2013260292

PATIENT
  Age: 46 Year
  Sex: Female
  Weight: 57.1 kg

DRUGS (6)
  1. CYTOMEL [Suspect]
     Dosage: 10 UG (DAILY), 1X/DAY
     Dates: end: 20130601
  2. CYTOMEL [Suspect]
     Dosage: 5 UG, UNK
     Dates: start: 20130621
  3. SYNTHROID [Suspect]
     Indication: THYROID HORMONE REPLACEMENT THERAPY
     Dosage: 88 UG, UNK
  4. SYNTHROID [Suspect]
     Dosage: 112 UG (1 IN 1D), UNK,
     Dates: start: 2009
  5. VITAMIN B12 [Concomitant]
     Dosage: UNK
  6. CODEINE [Concomitant]
     Dosage: UNK

REACTIONS (9)
  - Paraesthesia [Recovering/Resolving]
  - Weight increased [Unknown]
  - Alopecia [Unknown]
  - Bowel movement irregularity [Unknown]
  - Muscle spasms [Unknown]
  - Eye swelling [Recovering/Resolving]
  - Local swelling [Recovering/Resolving]
  - Constipation [Unknown]
  - Medication error [Unknown]
